FAERS Safety Report 11051088 (Version 3)
Quarter: 2015Q2

REPORT INFORMATION
  Report Type: Report from Study
  Country: US (occurrence: US)
  Receive Date: 20150421
  Receipt Date: 20150427
  Transmission Date: 20150821
  Serious: Yes (Hospitalization)
  Sender: FDA-Public Use
  Company Number: US-SA-2015SA046281

PATIENT
  Age: 59 Year
  Sex: Male
  Weight: 94.5 kg

DRUGS (9)
  1. OXALIPLATIN. [Suspect]
     Active Substance: OXALIPLATIN
     Indication: GASTRIC CANCER
     Route: 041
     Dates: start: 20150206, end: 20150206
  2. COLACE [Concomitant]
     Active Substance: DOCUSATE SODIUM
     Route: 065
  3. MORPHINE SULFATE. [Concomitant]
     Active Substance: MORPHINE SULFATE
     Route: 065
  4. LEUCOVORIN [Suspect]
     Active Substance: LEUCOVORIN
     Indication: GASTRIC CANCER
     Route: 041
     Dates: start: 20150206, end: 20150206
  5. DEXAMETHASONE. [Concomitant]
     Active Substance: DEXAMETHASONE
     Route: 065
  6. MORPHINE [Concomitant]
     Active Substance: MORPHINE
     Route: 065
  7. BLINDED THERAPY [Suspect]
     Active Substance: INVESTIGATIONAL PRODUCT
     Indication: GASTRIC CANCER
     Route: 041
     Dates: start: 20150206, end: 20150206
  8. 5-FU [Suspect]
     Active Substance: FLUOROURACIL
     Indication: GASTRIC CANCER
     Route: 041
     Dates: start: 20150206, end: 20150206
  9. LORAZEPAM. [Concomitant]
     Active Substance: LORAZEPAM
     Route: 065

REACTIONS (10)
  - Oedema peripheral [Unknown]
  - Dyspnoea [Unknown]
  - Asthenia [Unknown]
  - Anaemia [Unknown]
  - Hyperhidrosis [Unknown]
  - Dizziness [Unknown]
  - Deep vein thrombosis [Unknown]
  - Pulmonary embolism [Unknown]
  - Haematemesis [Unknown]
  - Ulcer haemorrhage [Unknown]

NARRATIVE: CASE EVENT DATE: 20150407
